FAERS Safety Report 14417925 (Version 3)
Quarter: 2018Q3

REPORT INFORMATION
  Report Type: Spontaneous
  Country: US (occurrence: US)
  Receive Date: 20180122
  Receipt Date: 20180910
  Transmission Date: 20181010
  Serious: Yes (Hospitalization, Other)
  Sender: FDA-Public Use
  Company Number: US-LEXICON PHARMACEUTICALS, INC-18-1606-00044

PATIENT
  Age: 47 Year
  Sex: Female

DRUGS (11)
  1. TELOTRISTAT ETHYL [Suspect]
     Active Substance: TELOTRISTAT ETHYL
     Indication: CARCINOID SYNDROME
     Route: 048
     Dates: start: 20170706, end: 20171221
  2. TYLENOL [Concomitant]
     Active Substance: ACETAMINOPHEN
     Route: 048
  3. FERROUS SULFATE. [Concomitant]
     Active Substance: FERROUS SULFATE
  4. VITAMIN D3 [Concomitant]
     Active Substance: CHOLECALCIFEROL
     Dosage: 4 CAPSULES DAILY
  5. SPIRONOLACTONE. [Concomitant]
     Active Substance: SPIRONOLACTONE
     Route: 048
  6. OCTREOTIDE. [Concomitant]
     Active Substance: OCTREOTIDE
     Route: 058
  7. ZANTAC [Concomitant]
     Active Substance: RANITIDINE HYDROCHLORIDE
     Route: 048
  8. TOPROL XL [Concomitant]
     Active Substance: METOPROLOL SUCCINATE
     Route: 048
  9. TELOTRISTAT ETHYL [Suspect]
     Active Substance: TELOTRISTAT ETHYL
     Route: 048
     Dates: start: 2018
  10. ASA [Concomitant]
     Active Substance: ASPIRIN
  11. K?DUR [Concomitant]
     Active Substance: POTASSIUM CHLORIDE
     Route: 048

REACTIONS (12)
  - Serum serotonin increased [Recovered/Resolved]
  - Liver operation [Unknown]
  - Cholecystectomy [Recovering/Resolving]
  - Liver function test increased [Recovering/Resolving]
  - Shock [Recovered/Resolved]
  - Hypomagnesaemia [Recovering/Resolving]
  - Hepatic cancer [Recovering/Resolving]
  - Weight decreased [Unknown]
  - Colectomy [Recovered/Resolved]
  - Hepatectomy [Recovering/Resolving]
  - Lymphadenectomy [Recovering/Resolving]
  - Abdominal distension [Recovered/Resolved]

NARRATIVE: CASE EVENT DATE: 20171030
